FAERS Safety Report 7447545-8 (Version None)
Quarter: 2011Q2

REPORT INFORMATION
  Report Type: 
  Country: None (occurrence: None)
  Receive Date: 20110429
  Receipt Date: 20110127
  Transmission Date: 20111010
  Serious: No
  Sender: FDA-Public Use
  Company Number: US-ASTRAZENECA-2011SE05182

PATIENT
  Age: 52 Year
  Sex: Male

DRUGS (2)
  1. NEXIUM [Suspect]
  2. SYMBICORT [Suspect]
     Dosage: DOSE, FREQUENCY UNKNOWN
     Route: 055

REACTIONS (1)
  - ASTHMA [None]
